FAERS Safety Report 12353895 (Version 6)
Quarter: 2017Q3

REPORT INFORMATION
  Report Type: Spontaneous
  Country: KR (occurrence: KR)
  Receive Date: 20160511
  Receipt Date: 20170801
  Transmission Date: 20171127
  Serious: Yes (Other)
  Sender: FDA-Public Use
  Company Number: KR-009507513-1604KOR011280

PATIENT
  Age: 73 Year
  Sex: Male
  Weight: 54.8 kg

DRUGS (55)
  1. EMEND (FOSAPREPITANT DIMEGLUMINE) [Suspect]
     Active Substance: FOSAPREPITANT DIMEGLUMINE
     Indication: PROPHYLAXIS OF NAUSEA AND VOMITING
     Dosage: 150 MG, ONCE
     Route: 042
     Dates: start: 20160321, end: 20160321
  2. ADRIAMYCIN [Concomitant]
     Active Substance: DOXORUBICIN HYDROCHLORIDE
     Dosage: 63 MG, ONCE, CYCLE 6
     Route: 042
     Dates: start: 20160704, end: 20160704
  3. VINCRISTINE SULFATE. [Concomitant]
     Active Substance: VINCRISTINE SULFATE
     Indication: LYMPHOPLASMACYTOID LYMPHOMA/IMMUNOCYTOMA
     Dosage: 1.7 MG, ONCE, CYCLE 1 (STRENGTH 1MG/ML 1 ML)
     Route: 042
     Dates: start: 20160321, end: 20160321
  4. SOLONDO [Concomitant]
     Active Substance: PREDNISOLONE
     Indication: PROPHYLAXIS OF NAUSEA AND VOMITING
     Dosage: 40 MG, ONCE
     Route: 048
     Dates: start: 20160321, end: 20160325
  5. SOLONDO [Concomitant]
     Active Substance: PREDNISOLONE
     Dosage: 40 MG, ONCE
     Route: 048
     Dates: start: 20160502, end: 20160506
  6. SOLONDO [Concomitant]
     Active Substance: PREDNISOLONE
     Dosage: 30 MG, BID
     Route: 048
     Dates: start: 20160523, end: 20160527
  7. SOLONDO [Concomitant]
     Active Substance: PREDNISOLONE
     Dosage: 40 MG, ONCE
     Route: 048
     Dates: start: 20160704, end: 20160708
  8. ALOXI [Concomitant]
     Active Substance: PALONOSETRON HYDROCHLORIDE
     Dosage: 0.25 MG, ONCE
     Route: 042
     Dates: start: 20160613, end: 20160613
  9. ALOXI [Concomitant]
     Active Substance: PALONOSETRON HYDROCHLORIDE
     Dosage: 0.25 MG, ONCE
     Route: 042
     Dates: start: 20160704, end: 20160704
  10. CRAVIT [Concomitant]
     Active Substance: LEVOFLOXACIN
     Indication: INFECTION PROPHYLAXIS
     Dosage: 500 MG, QD
     Route: 048
     Dates: start: 20160321, end: 20160330
  11. CRAVIT [Concomitant]
     Active Substance: LEVOFLOXACIN
     Dosage: 500 MG, QD
     Route: 048
     Dates: start: 20160502, end: 20160511
  12. ZYLORIC [Concomitant]
     Active Substance: ALLOPURINOL
     Indication: PROPHYLAXIS
     Dosage: 100 MG, QD
     Route: 048
     Dates: start: 20160306, end: 20160328
  13. ENDOXAN [Concomitant]
     Active Substance: CYCLOPHOSPHAMIDE
     Dosage: 905.6 MG, ONCE, CYCLE 2
     Route: 042
     Dates: start: 20160411, end: 20160411
  14. ADRIAMYCIN [Concomitant]
     Active Substance: DOXORUBICIN HYDROCHLORIDE
     Dosage: 61 MG, ONCE, CYCLE 4
     Route: 042
     Dates: start: 20160523, end: 20160523
  15. VINCRISTINE SULFATE. [Concomitant]
     Active Substance: VINCRISTINE SULFATE
     Dosage: 1.69 MG, ONCE, CYCLE 2 (STRENGTH 1MG/ML 1 ML)
     Route: 042
     Dates: start: 20160411, end: 20160411
  16. VINCRISTINE SULFATE. [Concomitant]
     Active Substance: VINCRISTINE SULFATE
     Dosage: 1.69 MG, ONCE, CYCLE 3 (STRENGTH 1MG/ML 1 ML)
     Route: 042
     Dates: start: 20160502, end: 20160502
  17. VINCRISTINE SULFATE. [Concomitant]
     Active Substance: VINCRISTINE SULFATE
     Dosage: 1.7 MG, ONCE, CYCLE 4 (STRENGTH 1MG/ML 1 ML)
     Route: 042
     Dates: start: 20160523, end: 20160523
  18. VINCRISTINE SULFATE. [Concomitant]
     Active Substance: VINCRISTINE SULFATE
     Dosage: 1.7 MG, ONCE, CYCLE 6 (STRENGTH 1MG/ML 1 ML)
     Route: 042
     Dates: start: 20160704, end: 20160704
  19. SOLONDO [Concomitant]
     Active Substance: PREDNISOLONE
     Dosage: 40 MG, ONCE
     Route: 048
     Dates: start: 20160523, end: 20160527
  20. SOLONDO [Concomitant]
     Active Substance: PREDNISOLONE
     Dosage: 5 MG, QD
     Dates: start: 20160418, end: 20160502
  21. SEPTRIN [Concomitant]
     Active Substance: SULFAMETHOXAZOLE\TRIMETHOPRIM
     Dosage: 1 TABLET, BID
     Route: 048
     Dates: start: 20160502, end: 20160508
  22. SEPTRIN [Concomitant]
     Active Substance: SULFAMETHOXAZOLE\TRIMETHOPRIM
     Dosage: 1 TABLET, BID
     Route: 048
     Dates: start: 20160613, end: 20160619
  23. CRAVIT [Concomitant]
     Active Substance: LEVOFLOXACIN
     Dosage: 500 MG, QD
     Route: 048
     Dates: start: 20160411, end: 20160420
  24. ENDOXAN [Concomitant]
     Active Substance: CYCLOPHOSPHAMIDE
     Indication: LYMPHOPLASMACYTOID LYMPHOMA/IMMUNOCYTOMA
     Dosage: 916.8 MG, ONCE, CYCLE 1
     Route: 042
     Dates: start: 20160321, end: 20160321
  25. ENDOXAN [Concomitant]
     Active Substance: CYCLOPHOSPHAMIDE
     Dosage: 928 MG, ONCE, CYCLE 5
     Route: 042
     Dates: start: 20160613, end: 20160613
  26. SOLONDO [Concomitant]
     Active Substance: PREDNISOLONE
     Indication: ADRENAL INSUFFICIENCY
     Dosage: 30 MG, BID
     Route: 048
     Dates: start: 20160321, end: 20160425
  27. SOLONDO [Concomitant]
     Active Substance: PREDNISOLONE
     Dosage: 30 MG, BID
     Route: 048
     Dates: start: 20160502, end: 20160506
  28. SEPTRIN [Concomitant]
     Active Substance: SULFAMETHOXAZOLE\TRIMETHOPRIM
     Indication: INFECTION PROPHYLAXIS
     Dosage: 1 TABLET, BID
     Route: 048
     Dates: start: 20160321, end: 20160327
  29. ENDOXAN [Concomitant]
     Active Substance: CYCLOPHOSPHAMIDE
     Dosage: 928 MG, ONCE, CYCLE 4
     Route: 042
     Dates: start: 20160523, end: 20160523
  30. ADRIAMYCIN [Concomitant]
     Active Substance: DOXORUBICIN HYDROCHLORIDE
     Dosage: 61 MG, ONCE, CYCLE 5
     Route: 042
     Dates: start: 20160613, end: 20160613
  31. SOLONDO [Concomitant]
     Active Substance: PREDNISOLONE
     Dosage: 30 MG, BID
     Route: 048
     Dates: start: 20160613, end: 20160617
  32. EMEND (FOSAPREPITANT DIMEGLUMINE) [Suspect]
     Active Substance: FOSAPREPITANT DIMEGLUMINE
     Dosage: 150 MG, ONCE
     Route: 042
     Dates: start: 20160523, end: 20160523
  33. ALOXI [Concomitant]
     Active Substance: PALONOSETRON HYDROCHLORIDE
     Dosage: 0.25 MG, ONCE
     Route: 042
     Dates: start: 20160411, end: 20160411
  34. ALOXI [Concomitant]
     Active Substance: PALONOSETRON HYDROCHLORIDE
     Dosage: 0.25 MG, ONCE
     Route: 042
     Dates: start: 20160502, end: 20160502
  35. CRAVIT [Concomitant]
     Active Substance: LEVOFLOXACIN
     Dosage: 500 MG, QD
     Route: 048
     Dates: start: 20160523, end: 20160601
  36. BOLGRE CAPSULES [Concomitant]
     Active Substance: IRON PROTEIN SUCCINYLATE
     Indication: ANAEMIA
     Dosage: 200 MG, BID
     Route: 048
     Dates: start: 20160307, end: 20160522
  37. EMEND (FOSAPREPITANT DIMEGLUMINE) [Suspect]
     Active Substance: FOSAPREPITANT DIMEGLUMINE
     Dosage: 150 MG, ONCE
     Route: 042
     Dates: start: 20160411, end: 20160411
  38. ENDOXAN [Concomitant]
     Active Substance: CYCLOPHOSPHAMIDE
     Dosage: 905.6 MG, ONCE, CYCLE 3
     Route: 042
     Dates: start: 20160502, end: 20160502
  39. ADRIAMYCIN [Concomitant]
     Active Substance: DOXORUBICIN HYDROCHLORIDE
     Dosage: 60 MG, ONCE, CYCLE 3
     Route: 042
     Dates: start: 20160502, end: 20160502
  40. VINCRISTINE SULFATE. [Concomitant]
     Active Substance: VINCRISTINE SULFATE
     Dosage: 1.7 MG, ONCE, CYCLE 5 (STRENGTH 1MG/ML 1 ML)
     Route: 042
     Dates: start: 20160613, end: 20160613
  41. SOLONDO [Concomitant]
     Active Substance: PREDNISOLONE
     Dosage: 40 MG, ONCE
     Route: 048
     Dates: start: 20160411, end: 20160415
  42. SOLONDO [Concomitant]
     Active Substance: PREDNISOLONE
     Dosage: 40 MG, ONCE
     Route: 048
     Dates: start: 20160613, end: 20160617
  43. ALOXI [Concomitant]
     Active Substance: PALONOSETRON HYDROCHLORIDE
     Indication: PROPHYLAXIS OF NAUSEA AND VOMITING
     Dosage: 0.25 MG, ONCE
     Route: 042
     Dates: start: 20160321, end: 20160321
  44. ADRIAMYCIN [Concomitant]
     Active Substance: DOXORUBICIN HYDROCHLORIDE
     Indication: LYMPHOPLASMACYTOID LYMPHOMA/IMMUNOCYTOMA
     Dosage: 61 MG, ONCE, CYCLE 1
     Route: 042
     Dates: start: 20160321, end: 20160321
  45. ADRIAMYCIN [Concomitant]
     Active Substance: DOXORUBICIN HYDROCHLORIDE
     Dosage: 60.3 MG , ONCE, CYCLE 2
     Route: 042
     Dates: start: 20160411, end: 20160411
  46. SOLONDO [Concomitant]
     Active Substance: PREDNISOLONE
     Dosage: 30 MG, BID
     Route: 048
     Dates: start: 20160411, end: 20160415
  47. ALOXI [Concomitant]
     Active Substance: PALONOSETRON HYDROCHLORIDE
     Dosage: 0.25 MG, ONCE
     Route: 042
     Dates: start: 20160523, end: 20160523
  48. SEPTRIN [Concomitant]
     Active Substance: SULFAMETHOXAZOLE\TRIMETHOPRIM
     Dosage: 1 TABLET, BID
     Route: 048
     Dates: start: 20160411, end: 20160417
  49. EMEND (FOSAPREPITANT DIMEGLUMINE) [Suspect]
     Active Substance: FOSAPREPITANT DIMEGLUMINE
     Dosage: 150 MG, ONCE
     Route: 042
     Dates: start: 20160502, end: 20160502
  50. EMEND (FOSAPREPITANT DIMEGLUMINE) [Suspect]
     Active Substance: FOSAPREPITANT DIMEGLUMINE
     Dosage: 150 MG, ONCE
     Route: 042
     Dates: start: 20160613, end: 20160613
  51. EMEND (FOSAPREPITANT DIMEGLUMINE) [Suspect]
     Active Substance: FOSAPREPITANT DIMEGLUMINE
     Dosage: 150 MG, ONCE
     Route: 042
     Dates: start: 20160704, end: 20160704
  52. ENDOXAN [Concomitant]
     Active Substance: CYCLOPHOSPHAMIDE
     Dosage: 956 MG, ONCE, CYCLE 6
     Route: 042
     Dates: start: 20160704, end: 20160704
  53. SOLONDO [Concomitant]
     Active Substance: PREDNISOLONE
     Dosage: 30 MG, BID
     Route: 048
     Dates: start: 20160704, end: 20160708
  54. SEPTRIN [Concomitant]
     Active Substance: SULFAMETHOXAZOLE\TRIMETHOPRIM
     Dosage: 1 TABLET, BID
     Route: 048
     Dates: start: 20160523, end: 20160529
  55. SEPTRIN [Concomitant]
     Active Substance: SULFAMETHOXAZOLE\TRIMETHOPRIM
     Dosage: 1 TABLET, BID
     Route: 048
     Dates: start: 20160704, end: 20160710

REACTIONS (5)
  - Adrenal insufficiency [Recovered/Resolved]
  - Neutrophil count decreased [Recovered/Resolved]
  - Dyspepsia [Recovered/Resolved]
  - Asthenia [Recovered/Resolved]
  - Constipation [Recovered/Resolved]

NARRATIVE: CASE EVENT DATE: 20160322
